FAERS Safety Report 10039896 (Version 2)
Quarter: 2014Q1

REPORT INFORMATION
  Report Type: Report from Study
  Country: JP (occurrence: JP)
  Receive Date: 20140326
  Receipt Date: 20140326
  Transmission Date: 20141002
  Serious: Yes (Hospitalization)
  Sender: FDA-Public Use
  Company Number: JP-JNJFOC-20130805028

PATIENT
  Age: 38 Year
  Sex: Female
  Weight: 82 kg

DRUGS (18)
  1. SIMPONI [Suspect]
     Indication: RHEUMATOID ARTHRITIS
     Route: 058
     Dates: start: 20130529
  2. SIMPONI [Suspect]
     Indication: RHEUMATOID ARTHRITIS
     Route: 058
     Dates: start: 20130501, end: 20130501
  3. SIMPONI [Suspect]
     Indication: RHEUMATOID ARTHRITIS
     Route: 058
     Dates: start: 20130403, end: 20130403
  4. SIMPONI [Suspect]
     Indication: RHEUMATOID ARTHRITIS
     Route: 058
     Dates: start: 20130306, end: 20130306
  5. SIMPONI [Suspect]
     Indication: RHEUMATOID ARTHRITIS
     Route: 058
     Dates: start: 20130208, end: 20130208
  6. SIMPONI [Suspect]
     Indication: RHEUMATOID ARTHRITIS
     Route: 058
     Dates: start: 20121226, end: 20121226
  7. SALAZOSULFAPYRIDINE [Concomitant]
     Indication: RHEUMATOID ARTHRITIS
     Route: 065
  8. PREDNISOLONE [Concomitant]
     Indication: RHEUMATOID ARTHRITIS
     Route: 048
  9. ELDECALCITOL [Concomitant]
     Indication: PROPHYLAXIS
     Route: 048
  10. LANSOPRAZOLE [Concomitant]
     Indication: PROPHYLAXIS
     Route: 065
  11. FOLIC ACID [Concomitant]
     Indication: PROPHYLAXIS
     Route: 065
  12. CLARITHROMYCIN [Concomitant]
     Indication: PROPHYLAXIS
     Route: 048
  13. ISONIAZID [Concomitant]
     Indication: PROPHYLAXIS
     Route: 065
  14. DOMPERIDONE [Concomitant]
     Indication: PYREXIA
     Route: 065
  15. METHOTREXATE [Concomitant]
     Indication: RHEUMATOID ARTHRITIS
     Route: 065
  16. LACTOMIN [Concomitant]
     Indication: PROPHYLAXIS
     Route: 048
  17. TACROLIMUS HYDRATE [Concomitant]
     Indication: RHEUMATOID ARTHRITIS
     Route: 065
     Dates: start: 20130208
  18. LOXOPROFEN [Concomitant]
     Indication: RHEUMATOID ARTHRITIS
     Route: 065
     Dates: start: 20130201

REACTIONS (4)
  - Pyrexia [Recovered/Resolved]
  - Nausea [Recovered/Resolved]
  - Vomiting [Recovered/Resolved]
  - Diarrhoea [Recovered/Resolved]
